FAERS Safety Report 5020713-0 (Version None)
Quarter: 2006Q2

REPORT INFORMATION
  Report Type: 
  Country: None (occurrence: None)
  Receive Date: 20060601
  Receipt Date: 20060517
  Transmission Date: 20061013
  Serious: Yes (Other)
  Sender: FDA-Public Use
  Company Number: 2006-BP-05608RO

PATIENT
  Age: 32 Year
  Sex: Female

DRUGS (2)
  1. CYCLOPHOSPHAMIDE [Suspect]
     Indication: SYSTEMIC LUPUS ERYTHEMATOSUS
     Dosage: IV
     Route: 042
     Dates: start: 20040301
  2. ORAL STEROIDS (CORTICOSTEROID NOS) [Suspect]
     Indication: SYSTEMIC LUPUS ERYTHEMATOSUS
     Dosage: PO
     Route: 048
     Dates: start: 20040301

REACTIONS (6)
  - CD4 LYMPHOCYTES DECREASED [None]
  - CYTOMEGALOVIRUS CHORIORETINITIS [None]
  - HIV INFECTION [None]
  - ORAL CANDIDIASIS [None]
  - PROTEINURIA [None]
  - TUBERCULOSIS [None]
